FAERS Safety Report 8941200 (Version 2)
Quarter: 2012Q4

REPORT INFORMATION
  Report Type: 
  Country: DE (occurrence: DE)
  Receive Date: 20121203
  Receipt Date: 20121220
  Transmission Date: 20130627
  Serious: Yes (Other)
  Sender: FDA-Public Use
  Company Number: DE-INCYTE CORPORATION-2012IN002473

PATIENT
  Age: 65 Year
  Sex: Male
  Weight: 86 kg

DRUGS (3)
  1. JAKAVI [Suspect]
     Indication: MYELOPROLIFERATIVE DISORDER
     Dosage: 10 mg, bid
     Route: 048
     Dates: start: 20120712
  2. TORASEMIDE [Concomitant]
  3. INSULIN [Concomitant]

REACTIONS (2)
  - Retinal haemorrhage [Unknown]
  - Platelet count decreased [Unknown]
